FAERS Safety Report 4344370-1 (Version None)
Quarter: 2004Q2

REPORT INFORMATION
  Report Type: 
  Country: None (occurrence: None)
  Receive Date: 20040420
  Receipt Date: 20040409
  Transmission Date: 20050107
  Serious: Yes (Other)
  Sender: FDA-Public Use
  Company Number: 2004208707DE

PATIENT
  Age: 59 Year
  Sex: Female

DRUGS (5)
  1. CAMPTOSAR [Suspect]
     Indication: CARCINOMA
     Dosage: 280 MG, CYCLIC, IV
     Route: 042
  2. FRAXIPARIN (HEPARIN-FRACTION, CALCIUM SALT) [Concomitant]
  3. VITAMIN C [Concomitant]
  4. ABNOBAVISCUM [Concomitant]
  5. CISPLATIN [Concomitant]

REACTIONS (1)
  - POLYNEUROPATHY [None]
